FAERS Safety Report 7892385-9 (Version None)
Quarter: 2011Q4

REPORT INFORMATION
  Report Type: 
  Country: None (occurrence: None)
  Receive Date: 20111103
  Receipt Date: 20111103
  Transmission Date: 20120403
  Serious: Yes (Hospitalization)
  Sender: FDA-Public Use
  Company Number: None

PATIENT
  Sex: Male
  Weight: 45.8133 kg

DRUGS (5)
  1. VALPROIC ACID [Suspect]
     Indication: EPILEPSY
     Dosage: 800 MG TID GT
     Dates: start: 20090311, end: 20111013
  2. LAMOTRIGINE [Concomitant]
  3. OMEPRAZOLE [Concomitant]
  4. TOPIRAMATE [Concomitant]
  5. LEVOTHYROXINE SODIUM [Concomitant]

REACTIONS (3)
  - MENTAL STATUS CHANGES [None]
  - AMMONIA INCREASED [None]
  - LETHARGY [None]
